FAERS Safety Report 18443187 (Version 22)
Quarter: 2021Q3

REPORT INFORMATION
  Report Type: Report from Study
  Country: MX (occurrence: MX)
  Receive Date: 20201029
  Receipt Date: 20210930
  Transmission Date: 20211014
  Serious: Yes (Hospitalization, Other)
  Sender: FDA-Public Use
  Company Number: MX-SHIRE-MX202008603

PATIENT
  Age: 15 Year
  Sex: Male
  Weight: 39 kg

DRUGS (13)
  1. IDURSULFASE [Suspect]
     Active Substance: IDURSULFASE
     Dosage: 3 VIALS,6MG/3ML, 1X/WEEK
     Route: 042
     Dates: start: 20200322
  2. IDURSULFASE [Suspect]
     Active Substance: IDURSULFASE
     Dosage: 3 VIALS,6MG/3ML, 1X/WEEK
     Route: 042
     Dates: start: 20200301
  3. SALBUTAMOL [Concomitant]
     Active Substance: ALBUTEROL
     Indication: PRODUCTIVE COUGH
     Route: 065
  4. IDURSULFASE [Suspect]
     Active Substance: IDURSULFASE
     Dosage: 3 VIALS,6MG/3ML, 1X/WEEK
     Route: 042
     Dates: start: 20200405
  5. PARACETAMOL [Concomitant]
     Active Substance: ACETAMINOPHEN
     Indication: PREMEDICATION
     Dosage: 5 MILLILITER, 1X/WEEK
     Route: 048
     Dates: start: 2013
  6. IDURSULFASE [Suspect]
     Active Substance: IDURSULFASE
     Dosage: 3 VIALS,6MG/3ML, 1X/WEEK
     Route: 042
     Dates: start: 20200308
  7. SALBUTAMOL [Concomitant]
     Active Substance: ALBUTEROL
     Indication: DYSPNOEA
  8. DIPHENHYDRAMINE. [Concomitant]
     Active Substance: DIPHENHYDRAMINE
     Indication: PREMEDICATION
     Dosage: 5 MILLILITER, 1X/WEEK
     Route: 048
     Dates: start: 2013
  9. IDURSULFASE [Suspect]
     Active Substance: IDURSULFASE
     Indication: MUCOPOLYSACCHARIDOSIS II
     Dosage: 3 VIALS,6MG/3ML, 1X/WEEK
     Route: 042
     Dates: start: 2013
  10. IDURSULFASE [Suspect]
     Active Substance: IDURSULFASE
     Dosage: 18 GRAM(3 VIALS),6MG/3ML, QD
     Route: 042
     Dates: start: 2013
  11. LEVETIRACETAM. [Concomitant]
     Active Substance: LEVETIRACETAM
     Indication: MUCOPOLYSACCHARIDOSIS II
     Dosage: 600 MILLIGRAM, BID
     Route: 048
     Dates: start: 2017
  12. OXCARBAZEPINE. [Concomitant]
     Active Substance: OXCARBAZEPINE
     Indication: SEIZURE
     Dosage: 500 MILLIGRAM, Q12H
     Route: 048
     Dates: start: 2017
  13. OXCARBAZEPINE. [Concomitant]
     Active Substance: OXCARBAZEPINE
     Indication: MUCOPOLYSACCHARIDOSIS II

REACTIONS (21)
  - Sinusitis [Recovered/Resolved]
  - Procedural haemorrhage [Unknown]
  - Post procedural complication [Not Recovered/Not Resolved]
  - Productive cough [Not Recovered/Not Resolved]
  - Product use in unapproved therapeutic environment [Recovered/Resolved]
  - Inappropriate schedule of product administration [Recovered/Resolved]
  - Hospitalisation [Recovered/Resolved]
  - Central venous catheterisation [Unknown]
  - Abscess limb [Recovered/Resolved]
  - Femur fracture [Not Recovered/Not Resolved]
  - Product dose omission issue [Recovered/Resolved]
  - Cough [Recovered/Resolved]
  - Illness [Recovered/Resolved]
  - Pyrexia [Recovered/Resolved]
  - Malaise [Recovered/Resolved]
  - Dyspnoea [Not Recovered/Not Resolved]
  - Spinal cord lipoma [Not Recovered/Not Resolved]
  - Product availability issue [Not Recovered/Not Resolved]
  - Seizure [Recovered/Resolved]
  - Restlessness [Not Recovered/Not Resolved]
  - Therapy interrupted [Not Recovered/Not Resolved]

NARRATIVE: CASE EVENT DATE: 2018
